FAERS Safety Report 9103003 (Version 1)
Quarter: 2013Q1

REPORT INFORMATION
  Report Type: Spontaneous
  Country: US (occurrence: US)
  Receive Date: 20130219
  Receipt Date: 20130219
  Transmission Date: 20140127
  Serious: Yes (Hospitalization, Other)
  Sender: FDA-Public Use
  Company Number: US-ELI_LILLY_AND_COMPANY-US201302003702

PATIENT
  Sex: Female

DRUGS (5)
  1. HUMULIN REGULAR [Suspect]
     Indication: TYPE 2 DIABETES MELLITUS
     Dosage: 100 U, EACH MORNING
     Dates: start: 201107
  2. HUMULIN REGULAR [Suspect]
     Dosage: 100 U, QD
  3. HUMULIN REGULAR [Suspect]
     Dosage: 90 U, EACH EVENING
     Dates: start: 201107
  4. HUMULIN REGULAR [Suspect]
     Indication: TYPE 2 DIABETES MELLITUS
     Dosage: UNK
  5. HUMULIN NPH [Suspect]
     Indication: TYPE 2 DIABETES MELLITUS

REACTIONS (7)
  - Hernia obstructive [Recovered/Resolved with Sequelae]
  - Coma [Recovered/Resolved]
  - Wound infection [Unknown]
  - Renal failure [Unknown]
  - Dyspnoea [Unknown]
  - Critical illness polyneuropathy [Unknown]
  - Weight increased [Not Recovered/Not Resolved]
